FAERS Safety Report 17586835 (Version 1)
Quarter: 2020Q1

REPORT INFORMATION
  Report Type: Spontaneous
  Country: US (occurrence: US)
  Receive Date: 20200326
  Receipt Date: 20200326
  Transmission Date: 20200409
  Serious: Yes (Other)
  Sender: FDA-Public Use
  Company Number: US-SMITH AND NEPHEW, INC-2020SMT00033

PATIENT
  Sex: Female

DRUGS (1)
  1. SECURA PROTECTIVE OINTMENT [Suspect]
     Active Substance: PETROLATUM
     Indication: SKIN IRRITATION
     Route: 067

REACTIONS (3)
  - Cystitis [Not Recovered/Not Resolved]
  - Purulent discharge [Not Recovered/Not Resolved]
  - Incorrect route of product administration [Unknown]
